FAERS Safety Report 5623311-0 (Version None)
Quarter: 2008Q1

REPORT INFORMATION
  Report Type: 
  Country: None (occurrence: None)
  Receive Date: 20080206
  Receipt Date: 20080130
  Transmission Date: 20080703
  Serious: Yes (Other)
  Sender: FDA-Public Use
  Company Number: CHPA2008US01915

PATIENT
  Age: 23 Year
  Sex: Male

DRUGS (1)
  1. GAS-X EXTSTR CHEWABLE TABS CHERRY CREME (NCH)(SIMETHICONE) CHEWABLE TA [Suspect]
     Indication: FLATULENCE
     Dosage: 250 MG, ONCE/SINGLE, ORAL
     Route: 048
     Dates: start: 20080129, end: 20080129

REACTIONS (1)
  - BLOOD PRESSURE INCREASED [None]
